FAERS Safety Report 18353932 (Version 1)
Quarter: 2020Q4

REPORT INFORMATION
  Report Type: Report from Study
  Country: KR (occurrence: KR)
  Receive Date: 20201006
  Receipt Date: 20201006
  Transmission Date: 20210114
  Serious: Yes (Hospitalization)
  Sender: FDA-Public Use
  Company Number: KR-CELLTRION INC.-2020KR028457

PATIENT

DRUGS (6)
  1. HERZUMA [Suspect]
     Active Substance: TRASTUZUMAB-PKRB
     Indication: PRODUCT USED FOR UNKNOWN INDICATION
     Dosage: 226, CYCLIC
     Route: 042
     Dates: start: 20200107, end: 20200107
  2. GENEXOL [PACLITAXEL] [Suspect]
     Active Substance: PACLITAXEL
     Indication: PRODUCT USED FOR UNKNOWN INDICATION
     Dosage: 120, CYCLIC
     Route: 042
     Dates: start: 20200107, end: 20200211
  3. CYRAMZA [Suspect]
     Active Substance: RAMUCIRUMAB
     Indication: PRODUCT USED FOR UNKNOWN INDICATION
     Dosage: 452, CYCLIC
     Route: 042
     Dates: start: 20200107, end: 20200908
  4. GENEXOL [PACLITAXEL] [Suspect]
     Active Substance: PACLITAXEL
     Dosage: 105, CYCLIC
     Route: 042
     Dates: start: 20200225, end: 20200317
  5. GENEXOL [PACLITAXEL] [Suspect]
     Active Substance: PACLITAXEL
     Dosage: 90, CYCLIC
     Route: 042
     Dates: start: 20200331, end: 20200908
  6. HERZUMA [Suspect]
     Active Substance: TRASTUZUMAB-PKRB
     Dosage: 113, CYCLIC
     Route: 042
     Dates: start: 20200114, end: 20200908

REACTIONS (3)
  - Gingival pain [Recovering/Resolving]
  - Abscess oral [Not Recovered/Not Resolved]
  - Intentional dose omission [Unknown]

NARRATIVE: CASE EVENT DATE: 20200923
